FAERS Safety Report 6120588-2 (Version None)
Quarter: 2009Q1

REPORT INFORMATION
  Report Type: 
  Country: None (occurrence: None)
  Receive Date: 20090312
  Receipt Date: 20090312
  Transmission Date: 20090719
  Serious: Yes (Hospitalization)
  Sender: FDA-Public Use
  Company Number: None

PATIENT
  Sex: Female
  Weight: 50.4 kg

DRUGS (1)
  1. BLEOMYCIN SULFATE [Suspect]
     Indication: HODGKIN'S DISEASE STAGE II
     Dosage: 15 UNITS X4 IV
     Route: 042
     Dates: start: 20090113, end: 20090224

REACTIONS (9)
  - CHILLS [None]
  - FATIGUE [None]
  - HEART RATE INCREASED [None]
  - HYPOTENSION [None]
  - NAUSEA [None]
  - PALLOR [None]
  - PYREXIA [None]
  - SKIN DISCOLOURATION [None]
  - VOMITING [None]
